FAERS Safety Report 15019450 (Version 1)
Quarter: 2018Q2

REPORT INFORMATION
  Report Type: Report from Study
  Country: AU (occurrence: AU)
  Receive Date: 20180617
  Receipt Date: 20180617
  Transmission Date: 20180711
  Serious: Yes (Death, Hospitalization, Other)
  Sender: FDA-Public Use
  Company Number: AU-BRISTOL-MYERS SQUIBB COMPANY-BMS-2018-048326

PATIENT
  Sex: Male
  Weight: 86 kg

DRUGS (2)
  1. IPILIMUMAB [Suspect]
     Active Substance: IPILIMUMAB
     Indication: ADRENOCORTICAL CARCINOMA
     Dosage: 86 MG, UNK
     Route: 042
     Dates: start: 20180505, end: 20180505
  2. NIVOLUMAB [Suspect]
     Active Substance: NIVOLUMAB
     Indication: ADRENOCORTICAL CARCINOMA
     Dosage: 258 MG, UNK
     Route: 042
     Dates: start: 20180505, end: 20180505

REACTIONS (2)
  - Neutropenia [Not Recovered/Not Resolved]
  - Cancer pain [Fatal]
